FAERS Safety Report 6391595-X (Version None)
Quarter: 2009Q4

REPORT INFORMATION
  Report Type: 
  Country: None (occurrence: None)
  Receive Date: 20091007
  Receipt Date: 20091001
  Transmission Date: 20100525
  Serious: Yes (Death)
  Sender: FDA-Public Use
  Company Number: US-B.I. PHARMACEUTICALS,INC./RIDGEFIELD-2009-DE-06298GD

PATIENT
  Age: 15 Year
  Sex: Female
  Weight: 47.6 kg

DRUGS (2)
  1. CLONIDINE [Suspect]
  2. METHYLPHENIDATE HCL [Suspect]

REACTIONS (3)
  - DRUG SCREEN POSITIVE [None]
  - FALL [None]
  - SUDDEN DEATH [None]
